FAERS Safety Report 15317487 (Version 2)
Quarter: 2019Q2

REPORT INFORMATION
  Report Type: Spontaneous
  Country: US (occurrence: US)
  Receive Date: 20180824
  Receipt Date: 20190625
  Transmission Date: 20190711
  Serious: Yes (Hospitalization, Other)
  Sender: FDA-Public Use
  Company Number: US-ASTRAZENECA-2018SF05780

PATIENT
  Age: 66 Year
  Sex: Female
  Weight: 56.7 kg

DRUGS (42)
  1. PROTONIX [Suspect]
     Active Substance: PANTOPRAZOLE SODIUM
     Indication: GASTROOESOPHAGEAL REFLUX DISEASE
     Dosage: GENERIC PANTAPROZOLE
     Route: 065
     Dates: start: 2017
  2. ZEGERID OTC [Suspect]
     Active Substance: OMEPRAZOLE\SODIUM BICARBONATE
     Indication: GASTROOESOPHAGEAL REFLUX DISEASE
     Route: 065
     Dates: start: 2003, end: 2017
  3. ZEGERID OTC [Suspect]
     Active Substance: OMEPRAZOLE\SODIUM BICARBONATE
     Indication: GASTROOESOPHAGEAL REFLUX DISEASE
     Route: 065
     Dates: start: 2011, end: 2017
  4. BETAMETHASONE. [Concomitant]
     Active Substance: BETAMETHASONE
  5. PREVACID 24 HR [Suspect]
     Active Substance: LANSOPRAZOLE
     Indication: GASTROOESOPHAGEAL REFLUX DISEASE
     Route: 065
     Dates: start: 2003, end: 2017
  6. DOXEPIN [Concomitant]
     Active Substance: DOXEPIN
  7. LEXAPRO [Concomitant]
     Active Substance: ESCITALOPRAM OXALATE
  8. TYLENOL [Concomitant]
     Active Substance: ACETAMINOPHEN
  9. TUMS [Concomitant]
     Active Substance: CALCIUM CARBONATE
  10. ONDANSETRON [Concomitant]
     Active Substance: ONDANSETRON
  11. ESCITALOPRAM [Concomitant]
     Active Substance: ESCITALOPRAM OXALATE
  12. PROTONIX [Suspect]
     Active Substance: PANTOPRAZOLE SODIUM
     Indication: GASTROOESOPHAGEAL REFLUX DISEASE
     Route: 065
     Dates: start: 2016
  13. PLAVIX [Concomitant]
     Active Substance: CLOPIDOGREL BISULFATE
  14. AVALIDE [Concomitant]
     Active Substance: HYDROCHLOROTHIAZIDE\IRBESARTAN
  15. PREDNISONE. [Concomitant]
     Active Substance: PREDNISONE
  16. FUROSEMIDE. [Concomitant]
     Active Substance: FUROSEMIDE
  17. PEPCID AC [Concomitant]
     Active Substance: FAMOTIDINE
  18. ZANTAC [Concomitant]
     Active Substance: RANITIDINE HYDROCHLORIDE
  19. CLOPIDOGREL [Concomitant]
     Active Substance: CLOPIDOGREL BISULFATE
  20. CALCIUM [Concomitant]
     Active Substance: CALCIUM
  21. FISH OIL [Concomitant]
     Active Substance: FISH OIL
  22. TRIAMCINOLONE [Concomitant]
     Active Substance: TRIAMCINOLONE
  23. ESCITALOPRAM [Concomitant]
     Active Substance: ESCITALOPRAM OXALATE
  24. VITAMIN D3 [Concomitant]
     Active Substance: CHOLECALCIFEROL
  25. METHYLPREDNISOLONE. [Concomitant]
     Active Substance: METHYLPREDNISOLONE
  26. BETAMETHASONE. [Concomitant]
     Active Substance: BETAMETHASONE
  27. HYDROXYZINE [Concomitant]
     Active Substance: HYDROXYZINE HYDROCHLORIDE
  28. WELCHOL [Concomitant]
     Active Substance: COLESEVELAM HYDROCHLORIDE
  29. BENICAR [Concomitant]
     Active Substance: OLMESARTAN MEDOXOMIL
  30. BIOTIN [Concomitant]
     Active Substance: BIOTIN
  31. TAGAMET [Concomitant]
     Active Substance: CIMETIDINE
  32. DOXEPIN [Concomitant]
     Active Substance: DOXEPIN
  33. FERROUS GLUCONATE [Concomitant]
     Active Substance: FERROUS GLUCONATE
  34. PRILOSEC OTC [Suspect]
     Active Substance: OMEPRAZOLE MAGNESIUM
     Indication: GASTROOESOPHAGEAL REFLUX DISEASE
     Route: 048
     Dates: start: 2003, end: 2017
  35. PRILOSEC OTC [Suspect]
     Active Substance: OMEPRAZOLE MAGNESIUM
     Indication: GASTROOESOPHAGEAL REFLUX DISEASE
     Route: 048
     Dates: start: 2003, end: 2009
  36. PRILOSEC OTC [Suspect]
     Active Substance: OMEPRAZOLE MAGNESIUM
     Indication: GASTROOESOPHAGEAL REFLUX DISEASE
     Route: 065
     Dates: start: 2016
  37. PREVACID 24 HR [Suspect]
     Active Substance: LANSOPRAZOLE
     Indication: GASTROOESOPHAGEAL REFLUX DISEASE
     Route: 065
     Dates: start: 2009, end: 2011
  38. XOPENEX [Concomitant]
     Active Substance: LEVALBUTEROL HYDROCHLORIDE
  39. POTASSIUM [Concomitant]
     Active Substance: POTASSIUM
  40. BYSTOLIC [Concomitant]
     Active Substance: NEBIVOLOL HYDROCHLORIDE
  41. GLUCOSAMINE [Concomitant]
     Active Substance: GLUCOSAMINE
  42. DESONIDE. [Concomitant]
     Active Substance: DESONIDE

REACTIONS (1)
  - Chronic kidney disease [Not Recovered/Not Resolved]

NARRATIVE: CASE EVENT DATE: 2013
